FAERS Safety Report 7212972-0 (Version None)
Quarter: 2011Q1

REPORT INFORMATION
  Report Type: 
  Country: None (occurrence: None)
  Receive Date: 20110106
  Receipt Date: 20110103
  Transmission Date: 20110831
  Serious: Yes (Hospitalization)
  Sender: FDA-Public Use
  Company Number: A0873796A

PATIENT
  Age: 55 Year
  Sex: Female

DRUGS (1)
  1. ADVAIR [Suspect]
     Indication: PRODUCT USED FOR UNKNOWN INDICATION
     Route: 055

REACTIONS (4)
  - GALLBLADDER OPERATION [None]
  - WEIGHT DECREASED [None]
  - ALOPECIA [None]
  - GALLBLADDER DISORDER [None]
